FAERS Safety Report 10681656 (Version 1)
Quarter: 2014Q4

REPORT INFORMATION
  Report Type: Spontaneous
  Country: None (occurrence: None)
  Receive Date: 20141224
  Receipt Date: 20141224
  Transmission Date: 20150529
  Serious: Yes (Hospitalization)
  Sender: FDA-Public Use
  Company Number: 2014120064

PATIENT
  Age: 74 Year
  Sex: Male
  Weight: 71.1 kg

DRUGS (9)
  1. TEMESTA (LORAZEPAM) [Concomitant]
     Active Substance: LORAZEPAM
  2. CORADARONE (AMIODARONE HYDROCHLORIDE) [Concomitant]
  3. CRESTOR [Concomitant]
     Active Substance: ROSUVASTATIN CALCIUM
  4. ALDACTONE [Suspect]
     Active Substance: SPIRONOLACTONE
     Route: 048
     Dates: start: 201409
  5. CONCOR (BISOPROLOL FUMARATE) [Concomitant]
  6. METFORMIN HYDROCHLORIDE. [Suspect]
     Active Substance: METFORMIN HYDROCHLORIDE
     Route: 048
  7. ASPIRIN CARDIO (ACETYLSALICYLIC ACID) [Concomitant]
     Active Substance: ASPIRIN
  8. TOREM [Suspect]
     Active Substance: TORSEMIDE
     Route: 048
     Dates: start: 201409, end: 20141025
  9. TRIATEC [Suspect]
     Active Substance: RAMIPRIL
     Route: 048
     Dates: start: 201409, end: 20141025

REACTIONS (8)
  - Dry mouth [None]
  - Dysphagia [None]
  - Vitamin B12 decreased [None]
  - Acute kidney injury [None]
  - Dehydration [None]
  - Gastritis erosive [None]
  - Hyponatraemia [None]
  - Hiatus hernia [None]

NARRATIVE: CASE EVENT DATE: 201410
